FAERS Safety Report 9536927 (Version 3)
Quarter: 2013Q4

REPORT INFORMATION
  Report Type: Report from Study
  Country: NL (occurrence: NL)
  Receive Date: 20130919
  Receipt Date: 20131024
  Transmission Date: 20140711
  Serious: Yes (Hospitalization)
  Sender: FDA-Public Use
  Company Number: NL-NOVOPROD-387176

PATIENT
  Age: 52 Year
  Sex: Female
  Weight: 109.4 kg

DRUGS (4)
  1. LIRAGLUTIDE FLEXPEN [Suspect]
     Indication: OBESITY
     Dosage: 0.6 MG, QD
     Route: 058
     Dates: start: 20110914
  2. LIRAGLUTIDE FLEXPEN [Suspect]
     Dosage: 3.0 MG, QD
     Route: 058
     Dates: start: 20111012
  3. FRAXIPARIN                         /00889603/ [Concomitant]
     Indication: PROPHYLAXIS
     Dosage: 0.3 ML, QD
     Dates: start: 20130824, end: 20130906
  4. ACICLOVIR [Concomitant]
     Dosage: UNK
     Dates: start: 20130824, end: 20130906

REACTIONS (1)
  - Arthritis bacterial [Recovered/Resolved]
